FAERS Safety Report 8517439-5 (Version None)
Quarter: 2012Q3

REPORT INFORMATION
  Report Type: 
  Country: None (occurrence: None)
  Receive Date: 20120718
  Receipt Date: 20120717
  Transmission Date: 20120928
  Serious: Yes (Hospitalization, Other)
  Sender: FDA-Public Use
  Company Number: IT-ROCHE-772191

PATIENT
  Sex: Male
  Weight: 58 kg

DRUGS (2)
  1. PEGASYS [Suspect]
     Indication: HEPATITIS C
     Route: 058
     Dates: start: 20101105, end: 20110413
  2. COPEGUS [Suspect]
     Indication: HEPATITIS C
     Dosage: DRUG NAME REPORTED AS COPEGUS.
     Route: 065
     Dates: start: 20101105, end: 20110413

REACTIONS (4)
  - ARRHYTHMIA [None]
  - DYSPNOEA [None]
  - VENTRICULAR HYPOKINESIA [None]
  - CARDIOVASCULAR DISORDER [None]
